FAERS Safety Report 11851850 (Version 6)
Quarter: 2016Q3

REPORT INFORMATION
  Report Type: Spontaneous
  Country: US (occurrence: US)
  Receive Date: 20151218
  Receipt Date: 20160728
  Transmission Date: 20161109
  Serious: Yes (Other)
  Sender: FDA-Public Use
  Company Number: US-GLAXOSMITHKLINE-US2015GSK177901

PATIENT
  Sex: Female

DRUGS (9)
  1. SEREVENT DISKUS [Suspect]
     Active Substance: SALMETEROL XINAFOATE
     Indication: ADVERSE DRUG REACTION
  2. EVISTA [Concomitant]
     Active Substance: RALOXIFENE HYDROCHLORIDE
  3. ALLEGRA [Concomitant]
     Active Substance: FEXOFENADINE HYDROCHLORIDE
  4. SEREVENT DISKUS [Suspect]
     Active Substance: SALMETEROL XINAFOATE
     Indication: ANAPHYLACTIC REACTION
     Dosage: 1 PUFF(S), BID
     Dates: start: 1975
  5. SYMBICORT [Suspect]
     Active Substance: BUDESONIDE\FORMOTEROL FUMARATE DIHYDRATE
  6. NASONEX [Suspect]
     Active Substance: MOMETASONE FUROATE
  7. FLOVENT [Suspect]
     Active Substance: FLUTICASONE PROPIONATE
     Indication: PRODUCT USED FOR UNKNOWN INDICATION
     Dosage: UNK, U
     Dates: start: 1975, end: 2015
  8. TEMAZEPAM. [Concomitant]
     Active Substance: TEMAZEPAM
  9. SEREVENT DISKUS [Suspect]
     Active Substance: SALMETEROL XINAFOATE
     Indication: DYSPNOEA

REACTIONS (12)
  - Dysphagia [Recovering/Resolving]
  - Salivary hypersecretion [Recovering/Resolving]
  - Total lung capacity decreased [Unknown]
  - Macular degeneration [Not Recovered/Not Resolved]
  - Drug interaction [Unknown]
  - Hiccups [Recovering/Resolving]
  - Osteoporosis [Not Recovered/Not Resolved]
  - Lacrimation increased [Unknown]
  - Visual acuity reduced [Unknown]
  - Drug hypersensitivity [Unknown]
  - Back pain [Not Recovered/Not Resolved]
  - Hip arthroplasty [Unknown]

NARRATIVE: CASE EVENT DATE: 2012
